FAERS Safety Report 6372662-3 (Version None)
Quarter: 2009Q3

REPORT INFORMATION
  Report Type: 
  Country: None (occurrence: None)
  Receive Date: 20090924
  Receipt Date: 20090410
  Transmission Date: 20100115
  Serious: Yes (Hospitalization, Other)
  Sender: FDA-Public Use
  Company Number: US-ASTRAZENECA-2008UW27467

PATIENT
  Age: 19878 Day
  Sex: Female
  Weight: 61.2 kg

DRUGS (6)
  1. SEROQUEL [Suspect]
     Indication: DEPRESSION
     Route: 048
     Dates: start: 20040401, end: 20080101
  2. ZYPREXA [Concomitant]
  3. PROZAC [Concomitant]
  4. WELLBUTRIN [Concomitant]
  5. ZOLOFT [Concomitant]
  6. EFFEXOR [Concomitant]

REACTIONS (2)
  - DIABETES MELLITUS [None]
  - PANCREATITIS [None]
